FAERS Safety Report 19212489 (Version 1)
Quarter: 2021Q2

REPORT INFORMATION
  Report Type: Spontaneous
  Country: IL (occurrence: IL)
  Receive Date: 20210504
  Receipt Date: 20210504
  Transmission Date: 20210717
  Serious: Yes (Other)
  Sender: FDA-Public Use
  Company Number: IL-TEVA-2021-IL-1907326

PATIENT
  Age: 30 Year
  Sex: Female

DRUGS (2)
  1. ALLERGYX [Suspect]
     Active Substance: LORATADINE
     Indication: SEASONAL ALLERGY
  2. ESTELLE [Concomitant]

REACTIONS (6)
  - Fatigue [Unknown]
  - Movement disorder [Recovered/Resolved]
  - Paralysis [Unknown]
  - Somnolence [Unknown]
  - Feeling abnormal [Unknown]
  - Disturbance in attention [Unknown]
